FAERS Safety Report 9618073 (Version 1)
Quarter: 2013Q4

REPORT INFORMATION
  Report Type: Report from Study
  Country: GB (occurrence: GB)
  Receive Date: 20131012
  Receipt Date: 20131012
  Transmission Date: 20140711
  Serious: Yes (Other)
  Sender: FDA-Public Use
  Company Number: GB-ACCORD-019868

PATIENT
  Age: 77 Year
  Sex: Male

DRUGS (1)
  1. MITOMYCIN [Suspect]
     Indication: CHEMOTHERAPY

REACTIONS (3)
  - Bladder perforation [Unknown]
  - Extravasation [Unknown]
  - Off label use [Unknown]
